FAERS Safety Report 8906645 (Version 1)
Quarter: 2012Q4

REPORT INFORMATION
  Report Type: 
  Country: GB (occurrence: GB)
  Receive Date: 20121114
  Receipt Date: 20121114
  Transmission Date: 20130627
  Serious: Yes (Hospitalization, Other)
  Sender: FDA-Public Use
  Company Number: GB-JNJFOC-20121104476

PATIENT
  Sex: Male

DRUGS (2)
  1. CALPOL [Suspect]
     Route: 065
  2. CALPOL [Suspect]
     Indication: PRODUCT USED FOR UNKNOWN INDICATION
     Route: 065

REACTIONS (6)
  - Cardiac disorder [Unknown]
  - Myocardial infarction [Unknown]
  - Atrioventricular block [Unknown]
  - Pneumonia [Unknown]
  - Failure to thrive [Unknown]
  - Malaise [Unknown]
